FAERS Safety Report 7871287-8 (Version None)
Quarter: 2011Q4

REPORT INFORMATION
  Report Type: 
  Country: None (occurrence: None)
  Receive Date: 20111029
  Receipt Date: 20110228
  Transmission Date: 20120403
  Serious: No
  Sender: FDA-Public Use
  Company Number: US-AMGEN-USASP2011011314

PATIENT
  Age: 48 Year
  Sex: Female
  Weight: 63.492 kg

DRUGS (3)
  1. ENBREL [Suspect]
     Indication: PRODUCT USED FOR UNKNOWN INDICATION
     Dosage: 50 MG, QWK
     Route: 058
  2. OMEGA 3                            /00931501/ [Concomitant]
     Dosage: 1000 MG, UNK
  3. MULTIVITAMIN                       /00097801/ [Concomitant]

REACTIONS (3)
  - INJECTION SITE HAEMATOMA [None]
  - ARTHRALGIA [None]
  - FATIGUE [None]
